FAERS Safety Report 16715452 (Version 1)
Quarter: 2019Q3

REPORT INFORMATION
  Report Type: Other
  Country: US (occurrence: IN)
  Receive Date: 20190819
  Receipt Date: 20190819
  Transmission Date: 20191005
  Serious: Yes (Life-Threatening, Hospitalization, Other)
  Sender: FDA-Public Use
  Company Number: IN-BRECKENRIDGE PHARMACEUTICAL, INC.-2073311

PATIENT
  Age: 43 Year
  Sex: Male

DRUGS (1)
  1. IMATINIB. [Suspect]
     Active Substance: IMATINIB MESYLATE
     Indication: CHRONIC MYELOID LEUKAEMIA
     Route: 048

REACTIONS (3)
  - Platelet dysfunction [Recovering/Resolving]
  - Hypofibrinogenaemia [Recovering/Resolving]
  - Melaena [Recovering/Resolving]
